FAERS Safety Report 14581041 (Version 1)
Quarter: 2018Q1

REPORT INFORMATION
  Report Type: Spontaneous
  Country: US (occurrence: US)
  Receive Date: 20180228
  Receipt Date: 20180228
  Transmission Date: 20180509
  Serious: No
  Sender: FDA-Public Use
  Company Number: US-PFIZER INC-2018078622

PATIENT
  Age: 9 Year
  Sex: Male
  Weight: 31.75 kg

DRUGS (1)
  1. QUILLIVANT XR [Suspect]
     Active Substance: METHYLPHENIDATE HYDROCHLORIDE
     Dosage: UNK
     Route: 048

REACTIONS (3)
  - Educational problem [Unknown]
  - Intentional product use issue [Unknown]
  - Abnormal behaviour [Unknown]
